FAERS Safety Report 8103537-7 (Version None)
Quarter: 2012Q1

REPORT INFORMATION
  Report Type: 
  Country: None (occurrence: None)
  Receive Date: 20120201
  Receipt Date: 20120125
  Transmission Date: 20120608
  Serious: Yes (Hospitalization, Other)
  Sender: FDA-Public Use
  Company Number: US-ABBOTT-11P-163-0880074-00

PATIENT
  Sex: Female

DRUGS (2)
  1. HUMIRA [Suspect]
     Indication: CROHN'S DISEASE
     Route: 058
     Dates: start: 20080501, end: 20111201
  2. HUMIRA [Suspect]
     Dosage: ONCE
     Route: 058
     Dates: start: 20120125

REACTIONS (6)
  - PNEUMONIA ASPIRATION [None]
  - HYPOPHAGIA [None]
  - INTESTINAL OBSTRUCTION [None]
  - GASTROINTESTINAL DISORDER [None]
  - WEIGHT DECREASED [None]
  - VOMITING PROJECTILE [None]
